FAERS Safety Report 8989300 (Version 1)
Quarter: 2012Q4

REPORT INFORMATION
  Report Type: 
  Country: SK (occurrence: SK)
  Receive Date: 20121228
  Receipt Date: 20121228
  Transmission Date: 20130627
  Serious: Yes (Death)
  Sender: FDA-Public Use
  Company Number: SK-CELGENEUS-260-21880-12121903

PATIENT
  Sex: Male

DRUGS (2)
  1. REVLIMID [Suspect]
     Indication: OSTEOMYELOFIBROSIS
     Route: 048
     Dates: start: 2011, end: 201208
  2. ANTIHYPERTENSIVES [Concomitant]
     Indication: HYPERTENSION
     Route: 065

REACTIONS (1)
  - Myelofibrosis [Fatal]
